FAERS Safety Report 8615292-2 (Version None)
Quarter: 2012Q3

REPORT INFORMATION
  Report Type: 
  Country: None (occurrence: None)
  Receive Date: 20120815
  Receipt Date: 20120815
  Transmission Date: 20120928
  Serious: No
  Sender: FDA-Public Use
  Company Number: None

PATIENT
  Age: 61 Year
  Sex: Female
  Weight: 106.5953 kg

DRUGS (1)
  1. INFED [Suspect]
     Indication: IRON DEFICIENCY ANAEMIA
     Dosage: 25MG ONCE IV BOLUS
     Route: 040
     Dates: start: 20120807, end: 20120807

REACTIONS (10)
  - MUSCULOSKELETAL DISCOMFORT [None]
  - INFUSION RELATED REACTION [None]
  - ERUCTATION [None]
  - COUGH [None]
  - FEELING HOT [None]
  - DYSPNOEA [None]
  - THROAT IRRITATION [None]
  - STRIDOR [None]
  - FLUSHING [None]
  - DIZZINESS [None]
